FAERS Safety Report 21773425 (Version 2)
Quarter: 2023Q1

REPORT INFORMATION
  Report Type: Spontaneous
  Country: ES (occurrence: ES)
  Receive Date: 20221223
  Receipt Date: 20230202
  Transmission Date: 20230417
  Serious: Yes (Other)
  Sender: FDA-Public Use
  Company Number: ae001ES22

PATIENT
  Age: 56 Year
  Sex: Female
  Weight: 75 kg

DRUGS (2)
  1. ASCLERA [Suspect]
     Active Substance: POLIDOCANOL
     Indication: Product used for unknown indication
  2. ASCLERA [Suspect]
     Active Substance: POLIDOCANOL

REACTIONS (4)
  - Loss of consciousness [Unknown]
  - Anal sphincter atony [Unknown]
  - Vomiting [Recovered/Resolved]
  - Dizziness [Unknown]
